FAERS Safety Report 10266302 (Version 1)
Quarter: 2014Q2

REPORT INFORMATION
  Report Type: Spontaneous
  Country: FR (occurrence: FR)
  Receive Date: 20140627
  Receipt Date: 20140627
  Transmission Date: 20141212
  Serious: Yes (Hospitalization, Other)
  Sender: FDA-Public Use
  Company Number: FR-GILEAD-2014-0106780

PATIENT
  Age: 50 Year
  Sex: Male

DRUGS (6)
  1. TRUVADA [Suspect]
     Indication: HIV INFECTION
     Dosage: UNK
     Route: 048
     Dates: start: 20140606, end: 20140610
  2. VIRAMUNE [Suspect]
     Dosage: UNK
     Route: 048
     Dates: start: 20140606, end: 20140610
  3. BACLOFEN [Concomitant]
  4. KEPPRA [Concomitant]
  5. NORSET [Concomitant]
  6. AUGMENTIN [Concomitant]
     Dosage: 3 G, QD

REACTIONS (1)
  - Hepatitis cholestatic [Recovered/Resolved]
